FAERS Safety Report 15996754 (Version 1)
Quarter: 2019Q1

REPORT INFORMATION
  Report Type: Spontaneous
  Country: US (occurrence: US)
  Receive Date: 20190222
  Receipt Date: 20190222
  Transmission Date: 20190418
  Serious: No
  Sender: FDA-Public Use
  Company Number: None

PATIENT
  Age: 62 Year
  Sex: Female

DRUGS (1)
  1. FLONASE [Suspect]
     Active Substance: FLUTICASONE PROPIONATE
     Indication: HYPERSENSITIVITY
     Route: 055
     Dates: start: 20190204, end: 20190222

REACTIONS (6)
  - Balance disorder [None]
  - Fall [None]
  - Dizziness [None]
  - Nausea [None]
  - Diarrhoea [None]
  - Vertigo [None]

NARRATIVE: CASE EVENT DATE: 20190204
